FAERS Safety Report 4784908-3 (Version None)
Quarter: 2005Q3

REPORT INFORMATION
  Report Type: 
  Country: None (occurrence: None)
  Receive Date: 20050930
  Receipt Date: 20050926
  Transmission Date: 20060218
  Serious: Yes (Other)
  Sender: FDA-Public Use
  Company Number: PHFR2005GB03208

PATIENT
  Age: 44 Year
  Sex: Male
  Weight: 72 kg

DRUGS (2)
  1. TERBINAFINE [Suspect]
     Indication: ONYCHOMYCOSIS
     Dosage: 250 MG/DAY
     Route: 048
     Dates: start: 20050117, end: 20050214
  2. SILDENAFIL [Concomitant]
     Indication: ERECTILE DYSFUNCTION
     Dosage: 100 MG WEEKLY
     Route: 048
     Dates: start: 20041208

REACTIONS (3)
  - FLUSHING [None]
  - HYPOAESTHESIA [None]
  - TRACHEAL DISORDER [None]
